FAERS Safety Report 19307906 (Version 1)
Quarter: 2021Q2

REPORT INFORMATION
  Report Type: Spontaneous
  Country: US (occurrence: US)
  Receive Date: 20210526
  Receipt Date: 20210526
  Transmission Date: 20210717
  Serious: Yes (Other)
  Sender: FDA-Public Use
  Company Number: US-ACCORD-226324

PATIENT
  Sex: Female
  Weight: 50.8 kg

DRUGS (1)
  1. METHOTREXATE ACCORD [Suspect]
     Active Substance: METHOTREXATE
     Indication: RHEUMATOID ARTHRITIS
     Dosage: ONCE WEEKLY, INJECTABLE
     Route: 058

REACTIONS (2)
  - Incorrect dose administered [Unknown]
  - Rheumatoid arthritis [Not Recovered/Not Resolved]
